FAERS Safety Report 21500642 (Version 2)
Quarter: 2022Q4

REPORT INFORMATION
  Report Type: Spontaneous
  Country: AR (occurrence: AR)
  Receive Date: 20221025
  Receipt Date: 20221115
  Transmission Date: 20230113
  Serious: Yes (Other)
  Sender: FDA-Public Use
  Company Number: AR-PFIZER INC-PV202200085920

PATIENT
  Age: 23 Year
  Sex: Female

DRUGS (1)
  1. ENBREL [Suspect]
     Active Substance: ETANERCEPT
     Indication: Psoriatic arthropathy
     Dosage: 50 MG, WEEKLY
     Route: 065
     Dates: start: 20200308

REACTIONS (2)
  - Thrombosis [Not Recovered/Not Resolved]
  - Nail discolouration [Not Recovered/Not Resolved]

NARRATIVE: CASE EVENT DATE: 20220701
